FAERS Safety Report 8361284-0 (Version None)
Quarter: 2012Q2

REPORT INFORMATION
  Report Type: 
  Country: None (occurrence: None)
  Receive Date: 20120515
  Receipt Date: 20120507
  Transmission Date: 20120825
  Serious: Yes (Hospitalization, Disabling, Other)
  Sender: FDA-Public Use
  Company Number: US-MERCK-1107USA03587

PATIENT
  Age: 56 Year
  Sex: Female
  Weight: 63 kg

DRUGS (7)
  1. FOSAMAX PLUS D [Suspect]
     Route: 048
     Dates: start: 20061226, end: 20070314
  2. BONIVA [Suspect]
     Indication: OSTEOPENIA
     Route: 048
     Dates: start: 20070913, end: 20080925
  3. RENOVA [Concomitant]
     Indication: SKIN DISORDER
     Route: 061
     Dates: start: 20030106
  4. PREMPRO [Concomitant]
     Route: 065
  5. FOSAMAX [Suspect]
     Indication: OSTEOPENIA
     Route: 048
     Dates: start: 20030101, end: 20070301
  6. FOSAMAX [Suspect]
     Route: 048
     Dates: start: 20050413
  7. BETAMETHASONE VALERATE [Concomitant]
     Indication: PSORIASIS
     Route: 061
     Dates: start: 20030106

REACTIONS (53)
  - UPPER RESPIRATORY TRACT INFECTION [None]
  - ANXIETY [None]
  - OSTEOSCLEROSIS [None]
  - TOOTH LOSS [None]
  - EXOSTOSIS [None]
  - HAEMATURIA [None]
  - TOOTH DISORDER [None]
  - LOW DENSITY LIPOPROTEIN INCREASED [None]
  - BONE FRAGMENTATION [None]
  - LARYNGEAL OEDEMA [None]
  - UTERINE LEIOMYOMA [None]
  - TOOTH FRACTURE [None]
  - VITAMIN D DECREASED [None]
  - REFLUX LARYNGITIS [None]
  - LIBIDO DECREASED [None]
  - REFUSAL OF TREATMENT BY PATIENT [None]
  - FALL [None]
  - COLONIC POLYP [None]
  - SALIVARY GLAND CALCULUS [None]
  - ORAL DISORDER [None]
  - ANKLE FRACTURE [None]
  - OSTEONECROSIS [None]
  - GINGIVAL RECESSION [None]
  - URINARY TRACT INFECTION [None]
  - SKIN DISORDER [None]
  - SINUSITIS [None]
  - RHINITIS ALLERGIC [None]
  - MULTIPLE INJURIES [None]
  - EXPOSED BONE IN JAW [None]
  - OSTEONECROSIS OF JAW [None]
  - BONE DISORDER [None]
  - BONE LOSS [None]
  - BREAST MASS [None]
  - CALCULUS URETERIC [None]
  - JOINT INJURY [None]
  - VITAMIN D DEFICIENCY [None]
  - GLOSSODYNIA [None]
  - OVARIAN CYST [None]
  - BONE LESION [None]
  - ENDOMETRIAL ATROPHY [None]
  - STRESS [None]
  - RENAL CYST [None]
  - POOR PERSONAL HYGIENE [None]
  - OVERWEIGHT [None]
  - MOUTH ULCERATION [None]
  - DENTAL PLAQUE [None]
  - GRANULOMATOUS LIVER DISEASE [None]
  - HYPERLIPIDAEMIA [None]
  - TONGUE COATED [None]
  - UTERINE MALPOSITION [None]
  - UPPER-AIRWAY COUGH SYNDROME [None]
  - NASAL SEPTUM DEVIATION [None]
  - TONGUE DISCOLOURATION [None]
